FAERS Safety Report 10269976 (Version 5)
Quarter: 2014Q4

REPORT INFORMATION
  Report Type: Spontaneous
  Country: US (occurrence: None)
  Receive Date: 20140626
  Receipt Date: 20141208
  Transmission Date: 20150528
  Serious: Yes (Other)
  Sender: FDA-Public Use
  Company Number: ADR-2014-00738

PATIENT
  Age: 60 Year
  Sex: Female

DRUGS (3)
  1. MORPHINE [Suspect]
     Active Substance: MORPHINE
     Indication: PAIN
  2. BACLOFEN INTRATHECAL [Suspect]
     Active Substance: BACLOFEN
     Indication: PAIN
  3. CLONIDINE. [Suspect]
     Active Substance: CLONIDINE
     Dosage: CONCENTRATION: 250MCG/ML AND DOSE 128 MCG/DAY (THERAPY DATE NOT SPECIFIED)

REACTIONS (12)
  - Urinary incontinence [None]
  - Granuloma [None]
  - Fall [None]
  - Muscular weakness [None]
  - Implant site reaction [None]
  - Drug withdrawal syndrome [None]
  - Diplegia [None]
  - Gait disturbance [None]
  - Cerebrovascular accident [None]
  - Heart injury [None]
  - Cystitis [None]
  - Thrombosis [None]
